FAERS Safety Report 10186425 (Version 1)
Quarter: 2014Q2

REPORT INFORMATION
  Report Type: Spontaneous
  Country: US (occurrence: US)
  Receive Date: 20140521
  Receipt Date: 20140521
  Transmission Date: 20141212
  Serious: No
  Sender: FDA-Public Use
  Company Number: US-ASTRAZENECA-2013SE85658

PATIENT
  Age: 82 Year
  Sex: Female
  Weight: 73.9 kg

DRUGS (3)
  1. PULMICORT FLEXHALER [Suspect]
     Indication: BRONCHITIS
     Route: 055
     Dates: start: 201311
  2. METFORMIN [Concomitant]
     Indication: DIABETES MELLITUS
  3. DALIRESP [Concomitant]
     Route: 048
     Dates: start: 201311

REACTIONS (6)
  - Feeling abnormal [Unknown]
  - Asthenia [Unknown]
  - Depression [Unknown]
  - Off label use [Unknown]
  - Wrong technique in drug usage process [Unknown]
  - Circumstance or information capable of leading to medication error [Unknown]
